FAERS Safety Report 17621043 (Version 3)
Quarter: 2020Q2

REPORT INFORMATION
  Report Type: Spontaneous
  Country: CA (occurrence: CA)
  Receive Date: 20200403
  Receipt Date: 20200407
  Transmission Date: 20200713
  Serious: No
  Sender: FDA-Public Use
  Company Number: CA-PFIZER INC-2019556245

PATIENT
  Age: 31 Year
  Sex: Male

DRUGS (1)
  1. RAPAMUNE [Suspect]
     Active Substance: SIROLIMUS
     Dosage: 2 MG, 2X/DAY

REACTIONS (1)
  - No adverse event [Unknown]
